FAERS Safety Report 10015751 (Version 1)
Quarter: 2014Q1

REPORT INFORMATION
  Report Type: Spontaneous
  Country: GB (occurrence: GB)
  Receive Date: 20140317
  Receipt Date: 20140317
  Transmission Date: 20141002
  Serious: Yes (Other)
  Sender: FDA-Public Use
  Company Number: GB-MYLANLABS-2014S1004947

PATIENT
  Age: 21 Year
  Sex: Male
  Weight: 95 kg

DRUGS (2)
  1. AZATHIOPRINE [Suspect]
     Indication: CROHN^S DISEASE
     Route: 048
  2. INFLIXIMAB [Concomitant]

REACTIONS (2)
  - Lymphopenia [Not Recovered/Not Resolved]
  - Furuncle [Unknown]
